FAERS Safety Report 7422474-4 (Version None)
Quarter: 2011Q2

REPORT INFORMATION
  Report Type: 
  Country: None (occurrence: None)
  Receive Date: 20110419
  Receipt Date: 20110411
  Transmission Date: 20111010
  Serious: No
  Sender: FDA-Public Use
  Company Number: US-BIOGENIDEC-2011BI013807

PATIENT
  Sex: Female

DRUGS (1)
  1. TYSABRI [Suspect]
     Indication: MULTIPLE SCLEROSIS
     Route: 042
     Dates: start: 20070430

REACTIONS (10)
  - OPTIC NEURITIS [None]
  - FATIGUE [None]
  - SLEEP APNOEA SYNDROME [None]
  - APHASIA [None]
  - MEMORY IMPAIRMENT [None]
  - MUSCLE TWITCHING [None]
  - OXYGEN SATURATION DECREASED [None]
  - DIPLOPIA [None]
  - VISUAL FIELD DEFECT [None]
  - VISUAL IMPAIRMENT [None]
